FAERS Safety Report 6160315-6 (Version None)
Quarter: 2009Q2

REPORT INFORMATION
  Report Type: 
  Country: None (occurrence: None)
  Receive Date: 20090420
  Receipt Date: 20090408
  Transmission Date: 20091009
  Serious: Yes (Hospitalization)
  Sender: FDA-Public Use
  Company Number: US-WYE-H08876709

PATIENT
  Sex: Male
  Weight: 10 kg

DRUGS (2)
  1. BENEFIX [Suspect]
     Indication: HAEMOPHILIA
     Dosage: SOME PART OF A DOSE (USUAL DOSE 900U) IN THE EMERGENCY ROOM
     Route: 042
     Dates: start: 20090406, end: 20090406
  2. BENEFIX [Suspect]
     Dosage: 900 U X 2 OR 3 INFUSIONS
     Route: 042
     Dates: end: 20090405

REACTIONS (1)
  - ANAPHYLACTIC SHOCK [None]
